FAERS Safety Report 19677640 (Version 1)
Quarter: 2021Q3

REPORT INFORMATION
  Report Type: Report from Study
  Country: US (occurrence: US)
  Receive Date: 20210810
  Receipt Date: 20210810
  Transmission Date: 20211014
  Serious: Yes (Death, Hospitalization)
  Sender: FDA-Public Use
  Company Number: US-ROCHE-2799310

PATIENT
  Age: 82 Year
  Sex: Female
  Weight: 74.3 kg

DRUGS (3)
  1. ATEZOLIZUMAB. [Suspect]
     Active Substance: ATEZOLIZUMAB
     Indication: BLADDER TRANSITIONAL CELL CARCINOMA
     Dosage: MOST RECENT DOSE: 24/AUG/2020, AND 07/DEC/2020
     Route: 041
     Dates: start: 20200713
  2. CISPLATIN. [Suspect]
     Active Substance: CISPLATIN
     Indication: BLADDER TRANSITIONAL CELL CARCINOMA
     Dosage: 35 MG/M2 IV WEEKLY FOR SIX WEEKS?MOST RECENT DOSE: 17/AUG/2020, 64 MG
     Route: 042
     Dates: start: 20200713
  3. MITOMYCIN C [Suspect]
     Active Substance: MITOMYCIN
     Indication: BLADDER TRANSITIONAL CELL CARCINOMA
     Route: 042

REACTIONS (6)
  - Adrenal insufficiency [Recovering/Resolving]
  - Encephalopathy [Recovered/Resolved]
  - Skin infection [Unknown]
  - Urinary tract infection [Recovered/Resolved]
  - Skin ulcer [Unknown]
  - Hyponatraemia [Recovering/Resolving]

NARRATIVE: CASE EVENT DATE: 20200902
